FAERS Safety Report 12570569 (Version 1)
Quarter: 2016Q3

REPORT INFORMATION
  Report Type: Spontaneous
  Country: US (occurrence: US)
  Receive Date: 20160719
  Receipt Date: 20160719
  Transmission Date: 20161109
  Serious: Yes (Hospitalization)
  Sender: FDA-Public Use
  Company Number: US-CORDEN PHARMA LATINA S.P.A.-US-2016COR000190

PATIENT
  Age: 37 Year
  Sex: Female

DRUGS (3)
  1. CYCLOPHOSPHAMIDE. [Suspect]
     Active Substance: CYCLOPHOSPHAMIDE
     Indication: PRIMITIVE NEUROECTODERMAL TUMOUR
     Dosage: 1000 MG/M2, ON CYCLE DAY 3 (CYCLES REPEATED EVERY THREE WEEKS)
     Route: 042
  2. ETOPOSIDE. [Suspect]
     Active Substance: ETOPOSIDE
     Indication: PRIMITIVE NEUROECTODERMAL TUMOUR
     Dosage: 60 MG/M2, ON CYCLE DAYS 1,2 AND 3 (CYCLES REPEATED EVERY THREE WEEKS)
     Route: 042
  3. CISPLATIN. [Suspect]
     Active Substance: CISPLATIN
     Indication: PRIMITIVE NEUROECTODERMAL TUMOUR
     Dosage: 25 MG/M2, ON CYCLE DAYS 1,2 AND 3 (CYCLES REPEATED EVERY THREE WEEKS)
     Route: 042

REACTIONS (2)
  - Acute kidney injury [Unknown]
  - Febrile neutropenia [Unknown]
